FAERS Safety Report 21546339 (Version 1)
Quarter: 2022Q4

REPORT INFORMATION
  Report Type: Other
  Country: GB (occurrence: GB)
  Receive Date: 20221103
  Receipt Date: 20221103
  Transmission Date: 20230112
  Serious: Yes (Other)
  Sender: FDA-Public Use
  Company Number: None

PATIENT
  Age: 31 Year
  Sex: Female
  Weight: 79 kg

DRUGS (13)
  1. NAPROXEN [Suspect]
     Active Substance: NAPROXEN
     Indication: Ill-defined disorder
     Dosage: UNK
     Route: 048
     Dates: start: 20221027
  2. NAPROXEN [Suspect]
     Active Substance: NAPROXEN
     Dosage: UNK
     Route: 065
     Dates: start: 20221027
  3. AMOXICILLIN [Concomitant]
     Active Substance: AMOXICILLIN
     Indication: Ill-defined disorder
     Dosage: UNK, TID (TAKE ONE 3 TIMES/DAY)
     Route: 065
     Dates: start: 20220928, end: 20221005
  4. COCODAMOL [Concomitant]
     Active Substance: ACETAMINOPHEN\CODEINE PHOSPHATE
     Indication: Ill-defined disorder
     Dosage: UNK, PRN (TAKE 1 OR 2 UPTO 4 TIMES/DAY AS REQUIRED)
     Route: 065
     Dates: start: 20220815, end: 20220912
  5. BECLOMETHASONE\FORMOTEROL [Concomitant]
     Active Substance: BECLOMETHASONE\FORMOTEROL
     Indication: Ill-defined disorder
     Dosage: UNK, BID (2 PUFFS)
     Route: 065
     Dates: start: 20220705
  6. HYDROCORTISONE [Concomitant]
     Active Substance: HYDROCORTISONE
     Indication: Ill-defined disorder
     Dosage: UNK, BID (APPLY TWICE DAILY SPARINGLY TO AFFECTED AREAS)
     Route: 065
     Dates: start: 20220912, end: 20220914
  7. MEFENAMIC ACID [Concomitant]
     Active Substance: MEFENAMIC ACID
     Indication: Ill-defined disorder
     Dosage: UNK, PRN (TAKE ONE UPTO 3 TIMES/DAY AS NEEDED)
     Route: 065
     Dates: start: 20221025
  8. MIRTAZAPINE [Concomitant]
     Active Substance: MIRTAZAPINE
     Indication: Ill-defined disorder
     Dosage: UNK UNK, AT BED TIME (TAKE ONCE AT NIGHT)
     Route: 065
     Dates: start: 20220815
  9. MONTELUKAST [Concomitant]
     Active Substance: MONTELUKAST SODIUM
     Indication: Ill-defined disorder
     Dosage: UNK, AT BED TIME (TAKE ONE AT NIGHT)
     Route: 065
     Dates: start: 20220705
  10. NORETHINDRONE [Concomitant]
     Active Substance: NORETHINDRONE
     Indication: Ill-defined disorder
     Dosage: UNK, TID (1TDS AS DIRECTED BY GYNAE)
     Route: 065
     Dates: start: 20220815, end: 20220816
  11. PROVERA [Concomitant]
     Active Substance: MEDROXYPROGESTERONE ACETATE
     Indication: Ill-defined disorder
     Dosage: UNK, TID (TAKE ONE TABLET THREE TIMES A DAY AS DIRECTED B...)
     Route: 065
     Dates: start: 20220816, end: 20220905
  12. ALBUTEROL [Concomitant]
     Active Substance: ALBUTEROL
     Indication: Ill-defined disorder
     Dosage: UNK, PRN (INHALE 2 DOSES AS NEEDED)
     Dates: start: 20220705
  13. TIBOLONE [Concomitant]
     Active Substance: TIBOLONE
     Indication: Ill-defined disorder
     Dosage: UNK (TAKE ONE DAILY)
     Route: 065
     Dates: start: 20220729

REACTIONS (1)
  - Mouth ulceration [Recovered/Resolved]

NARRATIVE: CASE EVENT DATE: 20221027
